FAERS Safety Report 6918789-6 (Version None)
Quarter: 2010Q3

REPORT INFORMATION
  Report Type: 
  Country: None (occurrence: None)
  Receive Date: 20100811
  Receipt Date: 20100730
  Transmission Date: 20110219
  Serious: Yes (Other)
  Sender: FDA-Public Use
  Company Number: FR-BRISTOL-MYERS SQUIBB COMPANY-15219801

PATIENT
  Age: 52 Year
  Sex: Female

DRUGS (1)
  1. KENACORT [Suspect]
     Dosage: 1DF=TWO INJECTIONS 1ST INJ ONE WEEK AFTER THYROID ABLATION + 2ND INJ FOUR WEEKS LATER.

REACTIONS (4)
  - ATROPHY [None]
  - PARAESTHESIA [None]
  - SENSATION OF HEAVINESS [None]
  - THROAT TIGHTNESS [None]
